FAERS Safety Report 7693053-9 (Version None)
Quarter: 2011Q3

REPORT INFORMATION
  Report Type: 
  Country: None (occurrence: None)
  Receive Date: 20110819
  Receipt Date: 20110817
  Transmission Date: 20111222
  Serious: Yes (Other)
  Sender: FDA-Public Use
  Company Number: US-PFIZER INC-2011189755

PATIENT
  Age: 13 Year
  Sex: Male
  Weight: 76.6 kg

DRUGS (1)
  1. GEODON [Suspect]
     Dosage: UNK

REACTIONS (4)
  - FATIGUE [None]
  - YAWNING [None]
  - AGGRESSION [None]
  - SOMNOLENCE [None]
